FAERS Safety Report 5398843-3 (Version None)
Quarter: 2007Q3

REPORT INFORMATION
  Report Type: 
  Country: None (occurrence: None)
  Receive Date: 20070725
  Receipt Date: 20070725
  Transmission Date: 20080115
  Serious: Yes (Hospitalization)
  Sender: FDA-Public Use
  Company Number: None

PATIENT
  Age: 49 Year
  Sex: Female

DRUGS (4)
  1. BEVACIZUMAB [Suspect]
     Dosage: 5MG/KG IV
     Route: 042
     Dates: start: 20070309, end: 20070423
  2. OXALIPLATIN [Suspect]
     Dosage: 40MG/M2 IV
     Route: 042
     Dates: start: 20070309, end: 20070514
  3. LEUCOVORIN 400MG [Suspect]
     Dosage: 400MG/M2
     Dates: start: 20070309, end: 20070323
  4. FLUOROURACIL [Suspect]
     Dosage: 200MG/M2 DAILY
     Dates: start: 20070309, end: 20070516

REACTIONS (7)
  - ABDOMINAL PAIN UPPER [None]
  - DIARRHOEA [None]
  - DYSURIA [None]
  - ENTERITIS [None]
  - PERIRECTAL ABSCESS [None]
  - POST PROCEDURAL INFECTION [None]
  - POSTOPERATIVE ABSCESS [None]
